FAERS Safety Report 7157965-7 (Version None)
Quarter: 2010Q4

REPORT INFORMATION
  Report Type: 
  Country: None (occurrence: None)
  Receive Date: 20101214
  Receipt Date: 20101209
  Transmission Date: 20110411
  Serious: Yes (Other)
  Sender: FDA-Public Use
  Company Number: ES-PFIZER INC-2010167735

PATIENT
  Age: 95 Year
  Sex: Female

DRUGS (4)
  1. TAZOCEL [Suspect]
     Indication: PNEUMONIA
     Dosage: 12 G DAILY
     Route: 042
     Dates: start: 20100715, end: 20100727
  2. METHYLPREDNISOLONE SODIUM SUCCINATE [Suspect]
     Dosage: UNK
     Dates: start: 20100716
  3. PANTOPRAZOLE [Suspect]
     Dosage: UNK
     Dates: start: 20100714
  4. AMOXYCILLIN/CLAVULANIC ACID [Suspect]
     Indication: PNEUMONIA
     Dosage: 3 G DAILY
     Route: 042
     Dates: start: 20100714, end: 20100714

REACTIONS (1)
  - HYPERBILIRUBINAEMIA [None]
